FAERS Safety Report 8255432-0 (Version None)
Quarter: 2012Q1

REPORT INFORMATION
  Report Type: 
  Country: None (occurrence: None)
  Receive Date: 20120329
  Receipt Date: 20120315
  Transmission Date: 20120608
  Serious: Yes (Other)
  Sender: FDA-Public Use
  Company Number: GB-DEXPHARM-20120104

PATIENT
  Age: 64 Year
  Sex: Male

DRUGS (7)
  1. OMEPRAZOLE [Suspect]
     Dates: start: 20111014, end: 20111209
  2. ASPIRIN [Concomitant]
  3. METOCLOPRAMIDE [Concomitant]
  4. OMEPRAZOLE [Suspect]
     Dates: start: 20120302
  5. ANUSOL [Concomitant]
  6. ESOMEPRAZOLE [Concomitant]
  7. SIMVASTATIN [Concomitant]

REACTIONS (2)
  - PALPITATIONS [None]
  - SUPRAVENTRICULAR EXTRASYSTOLES [None]
